FAERS Safety Report 13834987 (Version 1)
Quarter: 2017Q3

REPORT INFORMATION
  Report Type: Spontaneous
  Country: US (occurrence: US)
  Receive Date: 20170804
  Receipt Date: 20170804
  Transmission Date: 20171127
  Serious: Yes (Hospitalization)
  Sender: FDA-Public Use
  Company Number: None

PATIENT
  Age: 60 Year
  Sex: Male
  Weight: 90 kg

DRUGS (15)
  1. CLARITIN [Concomitant]
     Active Substance: LORATADINE
  2. THIAMINE. [Concomitant]
     Active Substance: THIAMINE
  3. FLONASE [Concomitant]
     Active Substance: FLUTICASONE PROPIONATE
  4. MIRALAX [Concomitant]
     Active Substance: POLYETHYLENE GLYCOL 3350
  5. ULTRAM [Concomitant]
     Active Substance: TRAMADOL HYDROCHLORIDE
  6. FOLVITE [Concomitant]
     Active Substance: FOLIC ACID
  7. CORGARD [Concomitant]
     Active Substance: NADOLOL
  8. ZOFRAN-ODT [Concomitant]
  9. CEPHULAC [Concomitant]
     Active Substance: LACTULOSE
  10. MAG-OX [Concomitant]
     Active Substance: MAGNESIUM OXIDE
  11. XIFAXAN [Concomitant]
     Active Substance: RIFAXIMIN
  12. ALDACTONE [Concomitant]
     Active Substance: SPIRONOLACTONE
  13. LASIX [Concomitant]
     Active Substance: FUROSEMIDE
  14. HARVONI [Concomitant]
     Active Substance: LEDIPASVIR\SOFOSBUVIR
  15. HARVONI [Suspect]
     Active Substance: LEDIPASVIR\SOFOSBUVIR
     Indication: HEPATITIS C
     Dosage: DOSE - 90-400 MG
     Route: 048
     Dates: start: 20170318

REACTIONS (5)
  - Ascites [None]
  - Urinary tract infection [None]
  - Proteus test positive [None]
  - Hepatic encephalopathy [None]
  - Oedema peripheral [None]

NARRATIVE: CASE EVENT DATE: 20170616
